FAERS Safety Report 6306750-4 (Version None)
Quarter: 2009Q3

REPORT INFORMATION
  Report Type: 
  Country: None (occurrence: None)
  Receive Date: 20090812
  Receipt Date: 20090807
  Transmission Date: 20100115
  Serious: Yes (Other)
  Sender: FDA-Public Use
  Company Number: US-JNJFOC-20090405377

PATIENT
  Sex: Female
  Weight: 101.15 kg

DRUGS (5)
  1. TYLENOL (CAPLET) [Suspect]
     Route: 048
  2. TYLENOL (CAPLET) [Suspect]
     Indication: ARTHRITIS
     Route: 048
  3. SYNTHROID [Concomitant]
     Indication: HYPOTHYROIDISM
  4. METFORMIN [Concomitant]
     Indication: DIABETES MELLITUS
  5. INJECTIONS [Concomitant]
     Indication: ARTHRITIS

REACTIONS (1)
  - HEPATOMEGALY [None]
